FAERS Safety Report 23926981 (Version 1)
Quarter: 2024Q2

REPORT INFORMATION
  Report Type: Spontaneous
  Country: US (occurrence: US)
  Receive Date: 20240531
  Receipt Date: 20240531
  Transmission Date: 20240715
  Serious: No
  Sender: FDA-Public Use
  Company Number: US-RADIUS HEALTH INC.-2023US005115

PATIENT
  Age: 61 Year
  Sex: Female

DRUGS (1)
  1. TYMLOS [Suspect]
     Active Substance: ABALOPARATIDE
     Indication: Senile osteoporosis
     Dosage: 80 MICROGRAM, QD
     Route: 058
     Dates: start: 202309, end: 202311

REACTIONS (8)
  - Initial insomnia [Unknown]
  - Sleep disorder [Unknown]
  - Headache [Not Recovered/Not Resolved]
  - Heart rate increased [Unknown]
  - Nausea [Unknown]
  - Bone pain [Unknown]
  - Palpitations [Unknown]
  - Arthralgia [Unknown]

NARRATIVE: CASE EVENT DATE: 20230901
